FAERS Safety Report 13568415 (Version 4)
Quarter: 2017Q4

REPORT INFORMATION
  Report Type: Report from Study
  Country: US (occurrence: US)
  Receive Date: 20170522
  Receipt Date: 20171031
  Transmission Date: 20180320
  Serious: Yes (Hospitalization, Other)
  Sender: FDA-Public Use
  Company Number: US-JNJFOC-20161205269

PATIENT
  Age: 51 Year
  Sex: Female

DRUGS (14)
  1. XANAX [Concomitant]
     Active Substance: ALPRAZOLAM
  2. BACTRIM [Concomitant]
     Active Substance: SULFAMETHOXAZOLE\TRIMETHOPRIM
  3. IMBRUVICA [Suspect]
     Active Substance: IBRUTINIB
     Indication: CHRONIC LYMPHOCYTIC LEUKAEMIA
     Route: 048
     Dates: start: 20161126, end: 20161228
  4. IMBRUVICA [Suspect]
     Active Substance: IBRUTINIB
     Indication: CHRONIC LYMPHOCYTIC LEUKAEMIA
     Route: 048
     Dates: start: 20161026
  5. IMBRUVICA [Suspect]
     Active Substance: IBRUTINIB
     Indication: CHRONIC LYMPHOCYTIC LEUKAEMIA
     Route: 048
     Dates: start: 201701, end: 20170403
  6. FIORICET [Concomitant]
     Active Substance: ACETAMINOPHEN\BUTALBITAL\CAFFEINE
  7. IMBRUVICA [Suspect]
     Active Substance: IBRUTINIB
     Indication: CHRONIC LYMPHOCYTIC LEUKAEMIA
     Route: 048
     Dates: start: 20161123
  8. IMBRUVICA [Suspect]
     Active Substance: IBRUTINIB
     Indication: CHRONIC LYMPHOCYTIC LEUKAEMIA
     Route: 048
     Dates: start: 20161124
  9. IMBRUVICA [Suspect]
     Active Substance: IBRUTINIB
     Indication: CHRONIC LYMPHOCYTIC LEUKAEMIA
     Route: 048
     Dates: start: 20161220
  10. PERCOCET [Concomitant]
     Active Substance: ACETAMINOPHEN\OXYCODONE HYDROCHLORIDE
  11. ZOCOR [Concomitant]
     Active Substance: SIMVASTATIN
     Indication: HYPERCHOLESTEROLAEMIA
  12. LEXAPRO [Concomitant]
     Active Substance: ESCITALOPRAM OXALATE
  13. VALTREX [Concomitant]
     Active Substance: VALACYCLOVIR HYDROCHLORIDE
  14. MOTRIN [Concomitant]
     Active Substance: IBUPROFEN

REACTIONS (22)
  - Dysphonia [Not Recovered/Not Resolved]
  - Vision blurred [Not Recovered/Not Resolved]
  - Pharyngitis streptococcal [Recovering/Resolving]
  - Headache [Unknown]
  - Pneumonia [Recovered/Resolved]
  - Drug dose omission [Recovered/Resolved]
  - Lymphadenopathy [Not Recovered/Not Resolved]
  - Oropharyngeal pain [Not Recovered/Not Resolved]
  - Lymphoma [Unknown]
  - Contusion [Unknown]
  - Diarrhoea [Not Recovered/Not Resolved]
  - Migraine [Recovered/Resolved]
  - Ear infection [Recovering/Resolving]
  - Drug intolerance [Unknown]
  - Asthenia [Not Recovered/Not Resolved]
  - Pharyngeal oedema [Unknown]
  - Vomiting [Unknown]
  - Influenza [Recovering/Resolving]
  - Dyspepsia [Not Recovered/Not Resolved]
  - Blood urine present [Unknown]
  - Fatigue [Not Recovered/Not Resolved]
  - Malaise [Unknown]

NARRATIVE: CASE EVENT DATE: 201612
